FAERS Safety Report 7837172-2 (Version None)
Quarter: 2011Q4

REPORT INFORMATION
  Report Type: 
  Country: None (occurrence: None)
  Receive Date: 20111024
  Receipt Date: 20110317
  Transmission Date: 20120403
  Serious: No
  Sender: FDA-Public Use
  Company Number: US-ABBOTT-11P-163-0712351-00

PATIENT
  Sex: Female
  Weight: 61.29 kg

DRUGS (4)
  1. LUPRON DEPOT [Suspect]
     Indication: ENDOMETRIOSIS
     Dates: start: 20101101
  2. LUPRON DEPOT [Suspect]
     Dosage: 11.25MG, 1 IN 3 MONTHS
     Dates: start: 20040101, end: 20060101
  3. EXCEDRINE MIGRAINE [Concomitant]
     Indication: PRODUCT USED FOR UNKNOWN INDICATION
  4. LORTAB [Concomitant]
     Indication: PAIN
     Dates: start: 20110101

REACTIONS (2)
  - PELVIC PAIN [None]
  - BACK PAIN [None]
